FAERS Safety Report 12716222 (Version 27)
Quarter: 2021Q1

REPORT INFORMATION
  Report Type: Report from Study
  Country: CA (occurrence: CA)
  Receive Date: 20160906
  Receipt Date: 20210211
  Transmission Date: 20210419
  Serious: Yes (Hospitalization, Other)
  Sender: FDA-Public Use
  Company Number: PHHY2015CA064990

PATIENT
  Age: 84 Year
  Sex: Female

DRUGS (7)
  1. SANDOSTATIN LAR DEPOT [Suspect]
     Active Substance: OCTREOTIDE ACETATE
  2. COUMADIN [Concomitant]
     Active Substance: WARFARIN SODIUM
     Indication: PRODUCT USED FOR UNKNOWN INDICATION
     Dosage: UNK
     Route: 065
  3. SANDOSTATIN LAR DEPOT [Suspect]
     Active Substance: OCTREOTIDE ACETATE
     Indication: NEUROENDOCRINE TUMOUR
     Dosage: 20 MG, Q4W
     Route: 030
     Dates: start: 20150608
  4. SANDOSTATIN LAR DEPOT [Suspect]
     Active Substance: OCTREOTIDE ACETATE
  5. SANDOSTATIN [Suspect]
     Active Substance: OCTREOTIDE ACETATE
     Indication: NEUROENDOCRINE TUMOUR
     Dosage: 50 UG, ONCE/SINGLE (TEST DOSE)
     Route: 058
     Dates: start: 20150521, end: 20150521
  6. SANDOSTATIN [Suspect]
     Active Substance: OCTREOTIDE ACETATE
  7. SANDOSTATIN [Suspect]
     Active Substance: OCTREOTIDE ACETATE

REACTIONS (29)
  - Blood pressure diastolic decreased [Unknown]
  - Gastrooesophageal reflux disease [Unknown]
  - Weight decreased [Unknown]
  - Biliary obstruction [Unknown]
  - Atrial fibrillation [Unknown]
  - Pancreatitis acute [Unknown]
  - Carcinoma in situ of skin [Unknown]
  - Fall [Unknown]
  - Essential hypertension [Unknown]
  - General physical health deterioration [Unknown]
  - Heart rate decreased [Unknown]
  - Neuroendocrine tumour [Unknown]
  - Transient ischaemic attack [Unknown]
  - Colitis ulcerative [Unknown]
  - Malignant neoplasm progression [Unknown]
  - Cerebrovascular accident [Unknown]
  - Pancreatitis [Unknown]
  - Blood pressure systolic increased [Unknown]
  - Head injury [Unknown]
  - Body temperature decreased [Unknown]
  - Chronic obstructive pulmonary disease [Unknown]
  - Herpes dermatitis [Unknown]
  - Vascular dementia [Unknown]
  - Constipation [Unknown]
  - Small intestine carcinoma [Unknown]
  - Peripheral vascular disorder [Unknown]
  - Dermatitis [Unknown]
  - Ear haemorrhage [Unknown]
  - Injection site pain [Unknown]

NARRATIVE: CASE EVENT DATE: 2015
